FAERS Safety Report 4662218-2 (Version None)
Quarter: 2005Q2

REPORT INFORMATION
  Report Type: 
  Country: None (occurrence: None)
  Receive Date: 20050516
  Receipt Date: 20050503
  Transmission Date: 20051028
  Serious: Yes (Hospitalization)
  Sender: FDA-Public Use
  Company Number: US-AMGEN-US131360

PATIENT
  Sex: Female

DRUGS (11)
  1. PROCRIT [Suspect]
     Indication: RENAL FAILURE CHRONIC
     Dates: start: 20030501
  2. LANOXIN [Concomitant]
  3. MICRONASE [Concomitant]
  4. LASIX [Concomitant]
  5. ENALAPRIL MALEATE [Concomitant]
  6. COUMADIN [Concomitant]
  7. COUMADIN [Concomitant]
  8. ACTOS [Concomitant]
  9. SODIUM BICARBONATE [Concomitant]
  10. IRON [Concomitant]
  11. ATENOLOL [Concomitant]

REACTIONS (6)
  - HAEMOGLOBIN DECREASED [None]
  - HYPOAESTHESIA [None]
  - IMMOBILE [None]
  - NASOPHARYNGITIS [None]
  - PAIN IN EXTREMITY [None]
  - WEIGHT INCREASED [None]
